FAERS Safety Report 21324254 (Version 1)
Quarter: 2022Q3

REPORT INFORMATION
  Report Type: Spontaneous
  Country: US (occurrence: None)
  Receive Date: 20220911
  Receipt Date: 20220911
  Transmission Date: 20221026
  Serious: Yes (Other)
  Sender: FDA-Public Use
  Company Number: None

PATIENT
  Age: 43 Year
  Sex: Female
  Weight: 74.7 kg

DRUGS (5)
  1. METRONIDAZOLE [Suspect]
     Active Substance: METRONIDAZOLE
     Indication: Bacterial infection
     Dosage: OTHER QUANTITY : 1 SUPPOSITORY(IES);?FREQUENCY : AT BEDTIME;?
     Route: 067
     Dates: start: 20220906, end: 20220910
  2. VITAMIN D [Concomitant]
     Active Substance: VITAMIN D NOS
  3. VITAMINS [Concomitant]
     Active Substance: VITAMINS
  4. ACIDOPHILUS [Concomitant]
     Active Substance: LACTOBACILLUS ACIDOPHILUS
  5. IRON [Concomitant]

REACTIONS (2)
  - Vaginal haemorrhage [None]
  - Feeling cold [None]

NARRATIVE: CASE EVENT DATE: 20220910
